FAERS Safety Report 5871405-7 (Version None)
Quarter: 2008Q3

REPORT INFORMATION
  Report Type: 
  Country: None (occurrence: None)
  Receive Date: 20080905
  Receipt Date: 20080110
  Transmission Date: 20090109
  Serious: No
  Sender: FDA-Public Use
  Company Number: A0702457A

PATIENT
  Age: 47 Year
  Sex: Male

DRUGS (9)
  1. REQUIP [Suspect]
     Dosage: 1.5MG AT NIGHT
     Route: 048
  2. UNKNOWN DRUG [Concomitant]
  3. ACCUPRIL [Concomitant]
  4. LEXAPRO [Concomitant]
  5. LIPITOR [Concomitant]
  6. LUNESTA [Concomitant]
  7. SONATA [Concomitant]
  8. ADDERALL 10 [Concomitant]
  9. XANAX [Concomitant]

REACTIONS (1)
  - IMPULSIVE BEHAVIOUR [None]
